FAERS Safety Report 7861855-1 (Version None)
Quarter: 2011Q4

REPORT INFORMATION
  Report Type: 
  Country: None (occurrence: None)
  Receive Date: 20111027
  Receipt Date: 20111017
  Transmission Date: 20120403
  Serious: Yes (Hospitalization)
  Sender: FDA-Public Use
  Company Number: GB-BAUSCH-2011BL007196

PATIENT
  Age: 81 Year
  Sex: Female

DRUGS (2)
  1. TIMOLOL MALEATE [Suspect]
     Indication: GLAUCOMA
     Route: 047
     Dates: start: 20110601, end: 20110601
  2. LUCENTIS [Suspect]
     Indication: MACULAR DEGENERATION
     Dates: start: 20101210

REACTIONS (1)
  - PULMONARY EMBOLISM [None]
